FAERS Safety Report 11455397 (Version 3)
Quarter: 2016Q1

REPORT INFORMATION
  Report Type: Spontaneous
  Country: US (occurrence: US)
  Receive Date: 20150903
  Receipt Date: 20160224
  Transmission Date: 20160525
  Serious: Yes (Hospitalization, Other)
  Sender: FDA-Public Use
  Company Number: US-BAYER-2015-410957

PATIENT
  Age: 69 Year
  Sex: Female

DRUGS (12)
  1. AVONEX [Suspect]
     Active Substance: INTERFERON BETA-1A
     Dosage: UNK
     Dates: end: 2012
  2. AMPYRA [Suspect]
     Active Substance: DALFAMPRIDINE
  3. BUSPIRONE HYDROCHLORIDE. [Concomitant]
     Active Substance: BUSPIRONE HYDROCHLORIDE
  4. METOPROLOL SUCCINATE. [Concomitant]
     Active Substance: METOPROLOL SUCCINATE
  5. COPAXONE [Suspect]
     Active Substance: GLATIRAMER ACETATE
     Dosage: UNK
     Dates: end: 2012
  6. AMLODIPINE [Concomitant]
     Active Substance: AMLODIPINE BESYLATE
  7. LISINOPRIL. [Concomitant]
     Active Substance: LISINOPRIL
  8. AMITRIPTYLINE HCL [Concomitant]
     Active Substance: AMITRIPTYLINE
  9. CLARITIN [Concomitant]
     Active Substance: LORATADINE
  10. BETASERON [Suspect]
     Active Substance: INTERFERON BETA-1B
     Indication: MULTIPLE SCLEROSIS
     Dosage: UNK
     Dates: end: 2012
  11. HYDROCORTISONE. [Suspect]
     Active Substance: HYDROCORTISONE
  12. PRILOSEC [Concomitant]
     Active Substance: OMEPRAZOLE MAGNESIUM

REACTIONS (13)
  - Urticaria [None]
  - Hepatic enzyme increased [None]
  - Head injury [Recovering/Resolving]
  - Gait disturbance [None]
  - Balance disorder [Not Recovered/Not Resolved]
  - Urinary incontinence [Recovering/Resolving]
  - Drug dose omission [None]
  - Fall [Recovering/Resolving]
  - Cystitis [Recovered/Resolved]
  - Pollakiuria [Recovering/Resolving]
  - Rash pruritic [None]
  - Antibody test abnormal [Unknown]
  - Bladder disorder [Recovering/Resolving]

NARRATIVE: CASE EVENT DATE: 201510
